FAERS Safety Report 5084820-9 (Version None)
Quarter: 2006Q3

REPORT INFORMATION
  Report Type: 
  Country: None (occurrence: None)
  Receive Date: 20060815
  Receipt Date: 20060727
  Transmission Date: 20061208
  Serious: Yes (Other)
  Sender: FDA-Public Use
  Company Number: ENT 2006-0094

PATIENT
  Age: 79 Year
  Sex: Male

DRUGS (6)
  1. COMTAN [Suspect]
     Dosage: 400 MG (100 MG, 4 IN 1 D)
     Dates: start: 20060623, end: 20060627
  2. EXELON [Suspect]
  3. SINEMET CR [Concomitant]
  4. LEVODOPA [Concomitant]
  5. ZYPREXA [Concomitant]
  6. WELLBUTRIN [Concomitant]

REACTIONS (2)
  - DELUSION [None]
  - PARANOIA [None]
